FAERS Safety Report 18299161 (Version 1)
Quarter: 2020Q3

REPORT INFORMATION
  Report Type: Spontaneous
  Country: FR (occurrence: FR)
  Receive Date: 20200922
  Receipt Date: 20200922
  Transmission Date: 20201103
  Serious: Yes (Hospitalization)
  Sender: FDA-Public Use
  Company Number: FR-PFIZER INC-2020363986

PATIENT
  Age: 56 Year
  Sex: Male
  Weight: 81 kg

DRUGS (11)
  1. PERMIXON [Suspect]
     Active Substance: HERBALS\SAW PALMETTO
     Indication: MICTURITION DISORDER
     Dosage: 2 DF, 1X/DAY
     Route: 048
     Dates: end: 20200826
  2. DOXORUBICIN HCL [Suspect]
     Active Substance: DOXORUBICIN HYDROCHLORIDE
     Indication: HODGKIN^S DISEASE
     Dosage: 50 MG, 1X/DAY
     Route: 042
     Dates: start: 202005, end: 20200825
  3. EMEND [Suspect]
     Active Substance: APREPITANT
     Indication: PROPHYLACTIC CHEMOTHERAPY
     Dosage: 125 MG, 1X/DAY
     Route: 048
     Dates: start: 202005, end: 20200825
  4. VINBLASTINE SULFATE. [Suspect]
     Active Substance: VINBLASTINE SULFATE
     Indication: HODGKIN^S DISEASE
     Dosage: 12 MG, 1X/DAY
     Route: 042
     Dates: start: 202005, end: 20200825
  5. OMEXEL [Concomitant]
     Active Substance: TAMSULOSIN HYDROCHLORIDE
     Dosage: UNK
  6. BLEOMYCINE [BLEOMYCIN SULFATE] [Suspect]
     Active Substance: BLEOMYCIN SULFATE
     Indication: HODGKIN^S DISEASE
     Dosage: 20.1 MG, 1X/DAY
     Route: 042
     Dates: start: 202005, end: 20200825
  7. PANTOPRAZOL [PANTOPRAZOLE] [Concomitant]
     Active Substance: PANTOPRAZOLE
     Dosage: UNK
  8. INNOHEP [Concomitant]
     Active Substance: TINZAPARIN SODIUM
     Dosage: UNK
  9. MEDROL [Suspect]
     Active Substance: METHYLPREDNISOLONE
     Dosage: 40 MG, 1X/DAY
     Route: 048
  10. ZOPHREN [ONDANSETRON HYDROCHLORIDE] [Suspect]
     Active Substance: ONDANSETRON
     Indication: PROPHYLACTIC CHEMOTHERAPY
     Dosage: 8 MG, 1X/DAY
     Route: 042
     Dates: start: 202005, end: 20200825
  11. DACARBAZINE. [Suspect]
     Active Substance: DACARBAZINE
     Indication: HODGKIN^S DISEASE
     Dosage: 750 MG, 1X/DAY
     Route: 042
     Dates: start: 202005, end: 20200825

REACTIONS (1)
  - Pneumocystis jirovecii pneumonia [Recovering/Resolving]

NARRATIVE: CASE EVENT DATE: 20200825
